FAERS Safety Report 4824012-9 (Version None)
Quarter: 2005Q4

REPORT INFORMATION
  Report Type: 
  Country: None (occurrence: None)
  Receive Date: 20051109
  Receipt Date: 20051018
  Transmission Date: 20060501
  Serious: Yes (Other)
  Sender: FDA-Public Use
  Company Number: 2005SE05928

PATIENT
  Age: 24254 Day
  Sex: Female

DRUGS (16)
  1. BLOPRESS TABLETS 12 [Suspect]
     Indication: HYPERTENSION
     Route: 048
     Dates: start: 20040526, end: 20050902
  2. TAMBOCOR [Suspect]
     Route: 048
     Dates: start: 20040114
  3. TAMBOCOR [Suspect]
     Route: 048
     Dates: end: 20050331
  4. TENORMIN [Concomitant]
     Indication: PROPHYLAXIS
     Route: 048
     Dates: end: 20040606
  5. TENORMIN [Concomitant]
     Indication: HYPERTENSION
     Route: 048
     Dates: end: 20040606
  6. TENORMIN [Concomitant]
     Route: 048
     Dates: start: 20040607
  7. TENORMIN [Concomitant]
     Route: 048
     Dates: start: 20040607
  8. LASIX [Concomitant]
     Route: 048
     Dates: end: 20040330
  9. LASIX [Concomitant]
     Route: 048
     Dates: start: 20040331
  10. WARFARIN [Concomitant]
     Route: 048
  11. VERAPAMIL [Concomitant]
     Indication: PROPHYLAXIS
     Route: 048
  12. VERAPAMIL [Concomitant]
     Route: 048
  13. EPADEL S600 [Concomitant]
     Route: 048
     Dates: start: 20040427
  14. PARAMIDIN [Concomitant]
     Route: 048
  15. BEPRICOR [Concomitant]
     Indication: ATRIAL FIBRILLATION
     Route: 048
     Dates: start: 20050401, end: 20050403
  16. BEPRICOR [Concomitant]
     Route: 048
     Dates: start: 20050404

REACTIONS (1)
  - INTERSTITIAL LUNG DISEASE [None]
